FAERS Safety Report 4383977-2 (Version None)
Quarter: 2004Q2

REPORT INFORMATION
  Report Type: 
  Country: None (occurrence: None)
  Receive Date: 20040623
  Receipt Date: 20040623
  Transmission Date: 20050107
  Serious: Yes (Other)
  Sender: FDA-Public Use
  Company Number: None

PATIENT
  Sex: Male
  Weight: 66.6788 kg

DRUGS (4)
  1. CYCLOBENZAPINE 10 MG [Suspect]
     Dosage: PO TID
     Route: 048
     Dates: start: 20040208, end: 20040210
  2. DICYCLOMIINE 10 MG [Suspect]
     Dosage: PO AC HS
     Route: 048
     Dates: start: 20040208, end: 20040210
  3. METOCLOPRAMIDE [Suspect]
     Dosage: PO ACHS
     Route: 048
     Dates: start: 20040208, end: 20040210
  4. PROPRANOLOL [Suspect]
     Indication: MIGRAINE
     Dosage: PO TID
     Route: 048
     Dates: start: 20040208, end: 20040210

REACTIONS (3)
  - DELUSION [None]
  - MENTAL STATUS CHANGES [None]
  - PSYCHOTIC DISORDER [None]
